FAERS Safety Report 7766636-5 (Version None)
Quarter: 2011Q3

REPORT INFORMATION
  Report Type: 
  Country: None (occurrence: None)
  Receive Date: 20110916
  Receipt Date: 20110906
  Transmission Date: 20111222
  Serious: Yes (Hospitalization)
  Sender: FDA-Public Use
  Company Number: 1000023137

PATIENT
  Age: 48 Year
  Sex: Male

DRUGS (6)
  1. XANAX [Concomitant]
  2. VIIBRYD [Suspect]
     Indication: DEPRESSION
     Dosage: 10 MG (10 MG, 1 IN 1 D), ORAL
     Route: 048
     Dates: start: 20110718, end: 20110724
  3. VIIBRYD [Suspect]
     Indication: DEPRESSION
     Dosage: 40 MG (40 MG, 1 IN 1 D), ORAL
     Route: 048
     Dates: start: 20110801, end: 20110801
  4. WELLBUTRIN (BUPROPION HYDROCHLORIDE) (BUPROPION HYDROCHLORIDE) [Concomitant]
  5. MIDODRINE (MIDODRINE) (MIDODRINE) [Concomitant]
  6. SIMVASTATIN [Concomitant]

REACTIONS (5)
  - CONFUSIONAL STATE [None]
  - PARAESTHESIA [None]
  - DYSPHEMIA [None]
  - HYPOAESTHESIA [None]
  - DIZZINESS [None]
